FAERS Safety Report 10166891 (Version 1)
Quarter: 2014Q2

REPORT INFORMATION
  Report Type: Spontaneous
  Country: US (occurrence: US)
  Receive Date: 20140512
  Receipt Date: 20140512
  Transmission Date: 20141212
  Serious: No
  Sender: FDA-Public Use
  Company Number: US-PFIZER INC-2014126059

PATIENT
  Age: 59 Year
  Sex: Female
  Weight: 138.78 kg

DRUGS (2)
  1. ARTHROTEC [Suspect]
     Indication: OSTEOARTHRITIS
     Dosage: UNK
     Dates: start: 1996
  2. DICLOFENAC SODIUM/MISOPROSTOL [Suspect]
     Indication: OSTEOARTHRITIS
     Dosage: 75 MG, 2X/DAY
     Route: 048
     Dates: start: 2014

REACTIONS (6)
  - Peripheral swelling [Not Recovered/Not Resolved]
  - Skin disorder [Not Recovered/Not Resolved]
  - Burning sensation [Not Recovered/Not Resolved]
  - Gait disturbance [Not Recovered/Not Resolved]
  - Drug ineffective [Unknown]
  - Pain [Not Recovered/Not Resolved]
